FAERS Safety Report 12525258 (Version 1)
Quarter: 2016Q3

REPORT INFORMATION
  Report Type: Spontaneous
  Country: FR (occurrence: FR)
  Receive Date: 20160704
  Receipt Date: 20160704
  Transmission Date: 20161109
  Serious: Yes (Other)
  Sender: FDA-Public Use
  Company Number: FR-PFIZER INC-2016317042

PATIENT
  Age: 16 Year
  Sex: Male

DRUGS (12)
  1. ZYVOXID [Suspect]
     Active Substance: LINEZOLID
     Indication: INFECTION
     Dosage: 400 MG, 2X/DAY
     Route: 048
     Dates: start: 20160503, end: 20160517
  2. VINCRISTINE SULFATE. [Suspect]
     Active Substance: VINCRISTINE SULFATE
     Indication: ACUTE LYMPHOCYTIC LEUKAEMIA
     Dosage: UNK
     Route: 041
     Dates: start: 20160507, end: 20160507
  3. ICLUSIG [Suspect]
     Active Substance: PONATINIB
     Dosage: 30 MG, 1X/DAY
     Route: 048
     Dates: start: 20160524, end: 20160607
  4. ZELITREX [Concomitant]
     Active Substance: VALACYCLOVIR HYDROCHLORIDE
     Dosage: UNK
     Route: 048
  5. DEXAMETHASONE. [Concomitant]
     Active Substance: DEXAMETHASONE
     Dosage: 4 MG, 3X/DAY
     Route: 048
     Dates: start: 20160511, end: 20160517
  6. SOLU-MEDROL [Suspect]
     Active Substance: METHYLPREDNISOLONE SODIUM SUCCINATE
     Dosage: 55 MG, DAILY
     Route: 041
     Dates: start: 20160503, end: 20160511
  7. ICLUSIG [Suspect]
     Active Substance: PONATINIB
     Dosage: 45 MG, 1X/DAY
     Route: 048
     Dates: start: 20160607
  8. DEXAMETHASONE. [Concomitant]
     Active Substance: DEXAMETHASONE
     Dosage: 4 MG, 2X/DAY
     Route: 048
     Dates: start: 20160517, end: 20160524
  9. DEXAMETHASONE. [Concomitant]
     Active Substance: DEXAMETHASONE
     Dosage: 4 MG, 1X/DAY
     Route: 048
     Dates: start: 20160524, end: 20160602
  10. ICLUSIG [Suspect]
     Active Substance: PONATINIB
     Indication: ACUTE LYMPHOCYTIC LEUKAEMIA
     Dosage: 30 MG, 1X/DAY
     Route: 048
     Dates: start: 20151001, end: 20160503
  11. ICLUSIG [Suspect]
     Active Substance: PONATINIB
     Dosage: 45 MG, 1X/DAY
     Route: 048
     Dates: start: 20160504, end: 20160524
  12. DEXAMETHASONE. [Concomitant]
     Active Substance: DEXAMETHASONE
     Dosage: 4 MG, 2X/DAY
     Route: 048

REACTIONS (3)
  - Hepatocellular injury [Unknown]
  - Dyspepsia [Unknown]
  - Scleroderma [Recovering/Resolving]

NARRATIVE: CASE EVENT DATE: 20160517
